FAERS Safety Report 5074059-5 (Version None)
Quarter: 2006Q3

REPORT INFORMATION
  Report Type: 
  Country: None (occurrence: None)
  Receive Date: 20060808
  Receipt Date: 20060728
  Transmission Date: 20061208
  Serious: Yes (Hospitalization)
  Sender: FDA-Public Use
  Company Number: AU-SANOFI-SYNTHELABO-F01200601760

PATIENT
  Sex: Male
  Weight: 69.4 kg

DRUGS (8)
  1. METOPROLOL TARTRATE [Concomitant]
  2. FLAGYL [Concomitant]
  3. DEXAMETHASONE [Concomitant]
  4. WARFARIN SODIUM [Concomitant]
  5. PARIET [Concomitant]
  6. RADIOTHERAPY [Concomitant]
     Indication: OESOPHAGEAL CARCINOMA
     Route: 050
  7. FLUOROURACIL [Suspect]
     Route: 042
     Dates: start: 20060605
  8. OXALIPLATIN [Suspect]
     Indication: OESOPHAGEAL CARCINOMA
     Route: 042
     Dates: start: 20060704, end: 20060704

REACTIONS (5)
  - ANAEMIA [None]
  - CHEST PAIN [None]
  - CHOLECYSTITIS [None]
  - HYPOALBUMINAEMIA [None]
  - SUPRAVENTRICULAR TACHYCARDIA [None]
